FAERS Safety Report 21214262 (Version 2)
Quarter: 2022Q3

REPORT INFORMATION
  Report Type: Report from Study
  Country: US (occurrence: US)
  Receive Date: 20220816
  Receipt Date: 20220928
  Transmission Date: 20221027
  Serious: No
  Sender: FDA-Public Use
  Company Number: US-NOVARTISTESTPH-NVSC2022US184389

PATIENT
  Sex: Female

DRUGS (2)
  1. ENTRESTO [Suspect]
     Active Substance: SACUBITRIL\VALSARTAN
     Indication: Product used for unknown indication
     Dosage: 0.5 DOSAGE FORM, QD (HALF TAB)
     Route: 048
  2. ENTRESTO [Suspect]
     Active Substance: SACUBITRIL\VALSARTAN
     Dosage: 0.5 DOSAGE FORM, Q48H (EVERY OTHER DAY)
     Route: 048

REACTIONS (8)
  - Fatigue [Unknown]
  - Disorientation [Unknown]
  - Blood pressure systolic decreased [Unknown]
  - Rhinorrhoea [Unknown]
  - Cough [Unknown]
  - Wrong technique in product usage process [Unknown]
  - Underdose [Unknown]
  - Inappropriate schedule of product administration [Unknown]
